FAERS Safety Report 15313732 (Version 3)
Quarter: 2018Q4

REPORT INFORMATION
  Report Type: Report from Study
  Country: ES (occurrence: ES)
  Receive Date: 20180824
  Receipt Date: 20181026
  Transmission Date: 20190204
  Serious: Yes (Hospitalization)
  Sender: FDA-Public Use
  Company Number: ES-ROCHE-2144416

PATIENT
  Age: 59 Year
  Sex: Female
  Weight: 60.1 kg

DRUGS (6)
  1. IBUPROFEN. [Concomitant]
     Active Substance: IBUPROFEN
     Route: 065
     Dates: start: 20170419
  2. ATEZOLIZUMAB. [Suspect]
     Active Substance: ATEZOLIZUMAB
     Indication: RENAL CELL CARCINOMA
     Dosage: DATE OF LAST DOSE PRIOR TO SAE: 06/JUN/2018 DAYS 1, 15, 29, AND ONCE IN 2 WEEKS FROM DAY 29 ONWARDS
     Route: 042
     Dates: start: 20180411, end: 20180619
  3. FERROUS SULFATE. [Concomitant]
     Active Substance: FERROUS SULFATE
     Route: 065
     Dates: start: 20180212
  4. RO 6874281 (FAP IL2V MAB) [Suspect]
     Active Substance: RO-6874281
     Indication: RENAL CELL CARCINOMA
     Dosage: DATE OF LAST DOSE PRIOR TO SAE: 06/JUN/2018?THERAPY RESTARTED ON 12/JUL/2018
     Route: 042
     Dates: start: 20180411, end: 20180619
  5. ORFIDAL [Concomitant]
     Active Substance: LORAZEPAM
     Route: 065
     Dates: start: 20170424
  6. PARACETAMOL [Concomitant]
     Active Substance: ACETAMINOPHEN
     Route: 065
     Dates: start: 20170419

REACTIONS (1)
  - Hypophysitis [Recovered/Resolved]

NARRATIVE: CASE EVENT DATE: 20180619
